FAERS Safety Report 5346407-X (Version None)
Quarter: 2007Q2

REPORT INFORMATION
  Report Type: 
  Country: None (occurrence: None)
  Receive Date: 20070605
  Receipt Date: 20070522
  Transmission Date: 20071010
  Serious: Yes (Hospitalization, Other)
  Sender: FDA-Public Use
  Company Number: CZ-SHR-CZ-2007-014701

PATIENT
  Age: 66 Year
  Sex: Female
  Weight: 60 kg

DRUGS (7)
  1. FLUDARABINE PHOSPHATE [Suspect]
     Dosage: 41 MG/D, CYCLES X 3D Q 28D
     Route: 042
     Dates: start: 20060214, end: 20060223
  2. FLUDARABINE PHOSPHATE [Suspect]
     Dates: start: 20060321, end: 20060323
  3. CYCLOPHOSPHAMIDE [Suspect]
     Dosage: 410 MG/D, CYCLES X 3D Q 28D
     Route: 042
     Dates: start: 20060214, end: 20060223
  4. CYCLOPHOSPHAMIDE [Suspect]
     Dates: start: 20060321, end: 20060323
  5. DIGOXIN [Concomitant]
     Dosage: .125 MG/D, UNK
     Dates: start: 20040101
  6. LETROX [Concomitant]
     Dosage: 2 TABS ?  100MG, MORNINGS
     Route: 048
     Dates: start: 19890101
  7. TENORETIC 100 [Concomitant]
     Dosage: 1 TAB ?  50 MG, MORNINGS
     Route: 048

REACTIONS (11)
  - ANAEMIA [None]
  - ARRHYTHMIA SUPRAVENTRICULAR [None]
  - CARDIAC FAILURE [None]
  - CELLULITIS [None]
  - CREATININE RENAL CLEARANCE DECREASED [None]
  - DISSEMINATED INTRAVASCULAR COAGULATION [None]
  - HYPOTENSION [None]
  - NEUTROPENIA [None]
  - PYREXIA [None]
  - SEPSIS [None]
  - THROMBOCYTOPENIA [None]
